FAERS Safety Report 7920846 (Version 3)
Quarter: 2014Q1

REPORT INFORMATION
  Report Type: Spontaneous
  Country: US (occurrence: US)
  Receive Date: 20110429
  Receipt Date: 20140313
  Transmission Date: 20141002
  Serious: No
  Sender: FDA-Public Use
  Company Number: US-ASTRAZENECA-2010SE10998

PATIENT
  Age: 65 Year
  Sex: Male

DRUGS (4)
  1. NEXIUM [Suspect]
     Indication: GASTROOESOPHAGEAL REFLUX DISEASE
     Route: 048
  2. NEXIUM [Suspect]
     Indication: GASTROOESOPHAGEAL REFLUX DISEASE
     Route: 048
     Dates: start: 2001
  3. NEXIUM [Suspect]
     Indication: GASTROOESOPHAGEAL REFLUX DISEASE
     Dosage: TOOK 1 NEXIUM CAPSULE INSTEAD OF 2
     Route: 048
  4. PRILOSEC [Suspect]
     Route: 048

REACTIONS (11)
  - Gastrooesophageal reflux disease [Unknown]
  - Chest pain [Unknown]
  - Diabetes mellitus [Unknown]
  - Cataract [Unknown]
  - Blood cholesterol increased [Unknown]
  - Parkinson^s disease [Unknown]
  - Gastric disorder [Not Recovered/Not Resolved]
  - Drug dose omission [Unknown]
  - Drug ineffective [Unknown]
  - Off label use [Not Recovered/Not Resolved]
  - Intentional drug misuse [Unknown]
